FAERS Safety Report 9077995 (Version 1)
Quarter: 2013Q1

REPORT INFORMATION
  Report Type: Report from Study
  Country: US (occurrence: US)
  Receive Date: 20130130
  Receipt Date: 20130130
  Transmission Date: 20140127
  Serious: No
  Sender: FDA-Public Use
  Company Number: US-ABBOTT-12P-163-0965887-00

PATIENT
  Age: 58 Year
  Sex: Female

DRUGS (9)
  1. HUMIRA 40 MG/0.8 ML PEN [Suspect]
     Indication: ANKYLOSING SPONDYLITIS
     Dates: start: 2010, end: 2010
  2. HUMIRA 40 MG/0.8 ML PEN [Suspect]
     Dates: start: 20120723
  3. OMEPRAZOLE [Concomitant]
     Indication: GASTROOESOPHAGEAL REFLUX DISEASE
     Dosage: 20MG DAILY
  4. SULFASALAZINE [Concomitant]
     Indication: CROHN^S DISEASE
     Dosage: 500MG DAILY
  5. AZOPT GTTS [Concomitant]
     Indication: GLAUCOMA
  6. LATANOPROST [Concomitant]
     Indication: GLAUCOMA
     Route: 047
  7. ESTRADIOL [Concomitant]
     Indication: MENOPAUSE
  8. TEMAZEPAM [Concomitant]
     Indication: INSOMNIA
  9. INDOMETHICIN [Concomitant]
     Indication: CROHN^S DISEASE

REACTIONS (2)
  - Diarrhoea [Not Recovered/Not Resolved]
  - Abdominal pain [Not Recovered/Not Resolved]
